FAERS Safety Report 6529219-0 (Version None)
Quarter: 2010Q1

REPORT INFORMATION
  Report Type: 
  Country: None (occurrence: None)
  Receive Date: 20100107
  Receipt Date: 20100101
  Transmission Date: 20100710
  Serious: Yes (Hospitalization, Other)
  Sender: FDA-Public Use
  Company Number: GB-ROCHE-667849

PATIENT
  Age: 48 Year
  Sex: Female

DRUGS (9)
  1. CAPECITABINE [Suspect]
     Indication: BREAST CANCER
     Route: 065
     Dates: start: 20070501, end: 20070601
  2. CAPECITABINE [Suspect]
     Route: 065
     Dates: start: 20080601, end: 20080801
  3. TRASTUZUMAB [Suspect]
     Indication: BREAST CANCER
     Route: 065
     Dates: start: 20060101, end: 20070301
  4. TRASTUZUMAB [Suspect]
     Route: 065
     Dates: start: 20071001, end: 20080301
  5. TRASTUZUMAB [Suspect]
     Route: 065
  6. PACLITAXEL [Suspect]
     Indication: BREAST CANCER
     Route: 065
  7. VINORELBINE [Suspect]
     Indication: BREAST CANCER
     Route: 065
     Dates: start: 20070601, end: 20070901
  8. DOCETAXEL [Suspect]
     Indication: BREAST CANCER
     Route: 065
     Dates: start: 20071001, end: 20080301
  9. LAPATINIB [Suspect]
     Indication: BREAST CANCER
     Route: 065
     Dates: start: 20080601, end: 20080801

REACTIONS (7)
  - ABDOMINAL PAIN [None]
  - DRUG INTOLERANCE [None]
  - JOINT SWELLING [None]
  - LETHARGY [None]
  - MALIGNANT NEOPLASM PROGRESSION [None]
  - UTERINE HAEMORRHAGE [None]
  - VOMITING [None]
